FAERS Safety Report 13227556 (Version 2)
Quarter: 2017Q1

REPORT INFORMATION
  Report Type: Report from Study
  Country: PA (occurrence: PA)
  Receive Date: 20170213
  Receipt Date: 20170217
  Transmission Date: 20170428
  Serious: Yes (Life-Threatening, Hospitalization)
  Sender: FDA-Public Use
  Company Number: PHHY2017PA000591

PATIENT
  Sex: Female

DRUGS (3)
  1. AFINITOR [Suspect]
     Active Substance: EVEROLIMUS
     Indication: BREAST CANCER
     Dosage: 5 MG, UNK
     Route: 065
  2. AFINITOR [Suspect]
     Active Substance: EVEROLIMUS
     Dosage: UNK
     Route: 065
     Dates: end: 201612
  3. AMLODIPINE [Concomitant]
     Active Substance: AMLODIPINE BESYLATE
     Indication: PRODUCT USED FOR UNKNOWN INDICATION
     Route: 065

REACTIONS (13)
  - Pyrexia [Recovering/Resolving]
  - Abdominal discomfort [Unknown]
  - Asthenia [Recovered/Resolved]
  - Pruritus generalised [Recovered/Resolved]
  - Blood potassium decreased [Recovering/Resolving]
  - Feeling abnormal [Recovering/Resolving]
  - Chills [Recovering/Resolving]
  - Skin exfoliation [Recovering/Resolving]
  - Malaise [Recovering/Resolving]
  - Blood glucose increased [Recovering/Resolving]
  - Hypophagia [Recovering/Resolving]
  - Haemoglobin decreased [Unknown]
  - Dry skin [Recovered/Resolved]
